FAERS Safety Report 17534378 (Version 1)
Quarter: 2020Q1

REPORT INFORMATION
  Report Type: Spontaneous
  Country: US (occurrence: US)
  Receive Date: 20200312
  Receipt Date: 20200312
  Transmission Date: 20200409
  Serious: Yes (Hospitalization)
  Sender: FDA-Public Use
  Company Number: US-ASTRAZENECA-2020SE34862

PATIENT
  Sex: Male
  Weight: 93 kg

DRUGS (2)
  1. ASPIRIN. [Concomitant]
     Active Substance: ASPIRIN
     Route: 048
  2. BRILINTA [Suspect]
     Active Substance: TICAGRELOR
     Indication: STENT PLACEMENT
     Route: 048
     Dates: start: 201908

REACTIONS (5)
  - Dyspnoea [Not Recovered/Not Resolved]
  - Skin laceration [Unknown]
  - Contusion [Unknown]
  - Body height decreased [Unknown]
  - Haemorrhage [Unknown]
